FAERS Safety Report 6930224-0 (Version None)
Quarter: 2010Q3

REPORT INFORMATION
  Report Type: 
  Country: None (occurrence: None)
  Receive Date: 20100818
  Receipt Date: 20100810
  Transmission Date: 20110219
  Serious: Yes (Hospitalization)
  Sender: FDA-Public Use
  Company Number: US-ASTRAZENECA-2010SE28901

PATIENT
  Age: 67 Year
  Sex: Female

DRUGS (6)
  1. SYMBICORT [Suspect]
     Indication: CHRONIC OBSTRUCTIVE PULMONARY DISEASE
     Dosage: 160/4.5 MCG TWO PUFFS TWO TIMES A DAY
     Route: 055
     Dates: start: 20100301
  2. SYMBICORT [Suspect]
     Dosage: 160/4.5 MCG EVERY FOUR TO SIX HOUR
     Route: 055
     Dates: start: 20100301
  3. FOLIC ACID [Concomitant]
  4. METHOTREXATE [Concomitant]
  5. PRAVASTATIN [Concomitant]
  6. SPIRIVA [Concomitant]

REACTIONS (3)
  - ANEURYSM [None]
  - CHRONIC OBSTRUCTIVE PULMONARY DISEASE [None]
  - DRUG INEFFECTIVE [None]
